FAERS Safety Report 8850254 (Version 1)
Quarter: 2012Q4

REPORT INFORMATION
  Report Type: 
  Country: US (occurrence: US)
  Receive Date: 20121019
  Receipt Date: 20121019
  Transmission Date: 20130627
  Serious: Yes (Other)
  Sender: FDA-Public Use
  Company Number: CHPA2012US021305

PATIENT
  Age: 78 Year
  Sex: Female

DRUGS (2)
  1. BENEFIBER W/ WHEAT DEXTRIN [Suspect]
     Indication: DIVERTICULITIS
     Dosage: 1 DF, BID
     Route: 048
     Dates: start: 2008, end: 20121007
  2. CALCIUM-D-REDOXON [Concomitant]
     Indication: OSTEOPOROSIS
     Dosage: Unk, Unk

REACTIONS (4)
  - Breast mass [Recovered/Resolved]
  - Off label use [Unknown]
  - Therapeutic response unexpected [Unknown]
  - Underdose [Unknown]
